FAERS Safety Report 13776614 (Version 1)
Quarter: 2017Q3

REPORT INFORMATION
  Report Type: Spontaneous
  Country: US (occurrence: US)
  Receive Date: 20170721
  Receipt Date: 20170721
  Transmission Date: 20171127
  Serious: Yes (Hospitalization)
  Sender: FDA-Public Use
  Company Number: None

PATIENT
  Age: 55 Year
  Sex: Male
  Weight: 86.2 kg

DRUGS (2)
  1. MEMANTINE HYDROCHLORIDE. [Suspect]
     Active Substance: MEMANTINE HYDROCHLORIDE
     Dates: end: 20170708
  2. OPDIVO [Concomitant]
     Active Substance: NIVOLUMAB

REACTIONS (5)
  - Asthenia [None]
  - Fall [None]
  - Pain [None]
  - Nuclear magnetic resonance imaging brain abnormal [None]
  - Back pain [None]

NARRATIVE: CASE EVENT DATE: 20170702
